FAERS Safety Report 6611464-7 (Version None)
Quarter: 2010Q1

REPORT INFORMATION
  Report Type: 
  Country: None (occurrence: None)
  Receive Date: 20100301
  Receipt Date: 20100301
  Transmission Date: 20100710
  Serious: Yes (Hospitalization)
  Sender: FDA-Public Use
  Company Number: None

PATIENT
  Age: 75 Year
  Sex: Male
  Weight: 106.9 kg

DRUGS (1)
  1. LISINOPRIL AND HYDROCHLOROTHIAZIDE [Suspect]
     Indication: HYPERTENSION
     Dosage: 10/12.5 MG EVERY DAY PO
     Route: 048
     Dates: start: 20070810, end: 20100120

REACTIONS (5)
  - ASTHENIA [None]
  - FALL [None]
  - HALLUCINATION, VISUAL [None]
  - HYPERCALCAEMIA [None]
  - MUSCLE TWITCHING [None]
